FAERS Safety Report 10222283 (Version 1)
Quarter: 2014Q2

REPORT INFORMATION
  Report Type: Spontaneous
  Country: ES (occurrence: ES)
  Receive Date: 20140606
  Receipt Date: 20140606
  Transmission Date: 20141212
  Serious: Yes (Hospitalization)
  Sender: FDA-Public Use
  Company Number: ES-GLAXOSMITHKLINE-B1000882A

PATIENT
  Age: 3 Year
  Sex: Male

DRUGS (1)
  1. VENTOLIN [Suspect]
     Indication: BRONCHOSPASM
     Dosage: .5MG PER DAY
     Route: 042
     Dates: start: 20140407, end: 20140408

REACTIONS (3)
  - Incorrect dose administered [Recovered/Resolved]
  - Condition aggravated [Recovered/Resolved]
  - Bronchospasm [Recovered/Resolved]
